FAERS Safety Report 18546301 (Version 2)
Quarter: 2021Q1

REPORT INFORMATION
  Report Type: Spontaneous
  Country: US (occurrence: US)
  Receive Date: 20201125
  Receipt Date: 20210106
  Transmission Date: 20210419
  Serious: No
  Sender: FDA-Public Use
  Company Number: US-PFIZER INC-2019002093

PATIENT
  Age: 69 Year
  Sex: Male

DRUGS (7)
  1. LYRICA [Suspect]
     Active Substance: PREGABALIN
     Indication: MYELOPATHY
     Dosage: 300 MG, 2X/DAY
     Route: 048
     Dates: start: 20190715
  2. LYRICA [Suspect]
     Active Substance: PREGABALIN
     Indication: NERVE ROOT INJURY CERVICAL
  3. LYRICA [Suspect]
     Active Substance: PREGABALIN
     Indication: FATIGUE
  4. LYRICA [Suspect]
     Active Substance: PREGABALIN
     Indication: SPINAL CORD DISORDER
  5. LYRICA [Suspect]
     Active Substance: PREGABALIN
     Indication: NEUROPATHY PERIPHERAL
  6. LYRICA [Suspect]
     Active Substance: PREGABALIN
     Indication: CERVICAL RADICULOPATHY
  7. LYRICA [Suspect]
     Active Substance: PREGABALIN
     Indication: SPINAL CORD INFARCTION

REACTIONS (1)
  - Feeling abnormal [Unknown]
